FAERS Safety Report 7364205-2 (Version None)
Quarter: 2011Q1

REPORT INFORMATION
  Report Type: 
  Country: None (occurrence: None)
  Receive Date: 20110321
  Receipt Date: 20110317
  Transmission Date: 20110831
  Serious: Yes (Death, Other)
  Sender: FDA-Public Use
  Company Number: US-AMGEN-USASP2011011882

PATIENT
  Age: 86 Year
  Sex: Male
  Weight: 78.458 kg

DRUGS (9)
  1. NPLATE [Suspect]
     Indication: IDIOPATHIC THROMBOCYTOPENIC PURPURA
     Dosage: 1 A?G/KG, QWK
     Dates: start: 20101111, end: 20110117
  2. VITAMIN A [Concomitant]
  3. CORTICOSTEROIDS [Concomitant]
  4. ATORVASTATIN CALCIUM [Concomitant]
  5. CATAPRES                           /00171101/ [Concomitant]
  6. FUROSEMIDE [Concomitant]
  7. CARVEDILOL [Concomitant]
  8. AMLODIPINE [Concomitant]
  9. RENVELA [Concomitant]

REACTIONS (2)
  - DEATH [None]
  - THROMBOPHLEBITIS SUPERFICIAL [None]
